FAERS Safety Report 8826382 (Version 3)
Quarter: 2012Q4

REPORT INFORMATION
  Report Type: 
  Country: US (occurrence: US)
  Receive Date: 20121008
  Receipt Date: 20121113
  Transmission Date: 20130627
  Serious: Yes (Other)
  Sender: FDA-Public Use
  Company Number: US-JNJFOC-20121001747

PATIENT
  Age: 52 Year
  Sex: Male
  Weight: 77.11 kg

DRUGS (6)
  1. PEPCID [Suspect]
     Indication: DYSPEPSIA
     Dosage: 1-2 times daily
     Route: 048
  2. PEPCID [Suspect]
     Indication: DYSPEPSIA
     Dosage: 2-3 tablets a week, as needed
     Route: 048
  3. ASPIRIN [Concomitant]
     Indication: ROUTINE HEALTH MAINTENANCE
     Route: 065
  4. SIMVASTATIN [Concomitant]
     Indication: BLOOD CHOLESTEROL INCREASED
     Route: 065
  5. PREVACID [Concomitant]
     Indication: DYSPEPSIA
     Route: 065
  6. NEXIUM [Concomitant]
     Indication: DYSPEPSIA

REACTIONS (3)
  - Ventricular extrasystoles [Recovered/Resolved]
  - Weight decreased [Unknown]
  - Blood cholesterol abnormal [Unknown]
